APPROVED DRUG PRODUCT: DEPO-MEDROL
Active Ingredient: METHYLPREDNISOLONE ACETATE
Strength: 20MG/ML
Dosage Form/Route: INJECTABLE;INJECTION
Application: N011757 | Product #002
Applicant: PFIZER INC
Approved: Approved Prior to Jan 1, 1982 | RLD: Yes | RS: Yes | Type: RX